FAERS Safety Report 24686325 (Version 2)
Quarter: 2025Q1

REPORT INFORMATION
  Report Type: Report from Study
  Country: US (occurrence: US)
  Receive Date: 20241202
  Receipt Date: 20250224
  Transmission Date: 20250409
  Serious: Yes (Other)
  Sender: ALNYLAM PHARMACEUTICALS
  Company Number: US-ALNYLAM PHARMACEUTICALS, INC.-ALN-2024-006616

PATIENT

DRUGS (2)
  1. AMVUTTRA [Suspect]
     Active Substance: VUTRISIRAN
     Indication: Hereditary neuropathic amyloidosis
     Route: 065
     Dates: start: 20240521, end: 20240521
  2. AMVUTTRA [Suspect]
     Active Substance: VUTRISIRAN
     Route: 065
     Dates: start: 20250214, end: 20250214

REACTIONS (3)
  - Prostate cancer [Unknown]
  - Prostatic operation [Unknown]
  - Post procedural haematuria [Recovering/Resolving]

NARRATIVE: CASE EVENT DATE: 20250201
